FAERS Safety Report 4307889-5 (Version None)
Quarter: 2004Q1

REPORT INFORMATION
  Report Type: 
  Country: None (occurrence: None)
  Receive Date: 20040226
  Receipt Date: 20030826
  Transmission Date: 20041129
  Serious: Yes (Other)
  Sender: FDA-Public Use
  Company Number: 2002134462US

PATIENT
  Age: 51 Year
  Sex: Female

DRUGS (11)
  1. CELEBREX [Suspect]
     Indication: OSTEOARTHRITIS
     Dosage: 200 MG, BID, ORAL
     Route: 048
     Dates: start: 19980101, end: 20011101
  2. CELEBREX [Suspect]
     Indication: OSTEOARTHRITIS
     Dosage: 200 MG, BID, ORAL
     Route: 048
     Dates: start: 20011101
  3. RETROVIR [Suspect]
     Dates: start: 20021001, end: 20021101
  4. CRIXIVAN [Suspect]
     Dates: start: 20021001, end: 20021101
  5. EPIVIR [Suspect]
     Dates: start: 20021001, end: 20021101
  6. DARVOCET-N 100 [Concomitant]
  7. VITAMIN C [Concomitant]
  8. ELAVIL [Concomitant]
  9. ASPIRIN [Concomitant]
  10. MULTIVITAMINS (ERGOCALCIFEROL, RETINOL, PANTHENOL) [Concomitant]
  11. VIVELLE [Concomitant]

REACTIONS (1)
  - GLAUCOMA [None]
